FAERS Safety Report 5614239-0 (Version None)
Quarter: 2008Q1

REPORT INFORMATION
  Report Type: 
  Country: None (occurrence: None)
  Receive Date: 20080205
  Receipt Date: 20080128
  Transmission Date: 20080703
  Serious: Yes (Other)
  Sender: FDA-Public Use
  Company Number: BG-PFIZER INC-2008009137

PATIENT
  Sex: Male
  Weight: 22 kg

DRUGS (10)
  1. GENOTROPIN [Suspect]
     Indication: GROWTH RETARDATION
     Route: 058
     Dates: start: 20050701, end: 20050901
  2. GENOTROPIN [Suspect]
     Route: 058
     Dates: start: 20061001, end: 20061101
  3. EPOGEN [Concomitant]
     Route: 058
  4. MALTOFER [Concomitant]
     Route: 048
  5. CALCIUM CARBONATE [Concomitant]
     Route: 048
  6. SEVELAMER [Concomitant]
     Route: 048
  7. NIFEDIPINE [Concomitant]
     Route: 048
  8. ENALAPRIL MALEATE [Concomitant]
     Route: 048
  9. PRAZOSIN HCL [Concomitant]
     Route: 048
  10. KETOSTERIL [Concomitant]
     Route: 048

REACTIONS (1)
  - BLINDNESS [None]
